FAERS Safety Report 15302421 (Version 3)
Quarter: 2018Q4

REPORT INFORMATION
  Report Type: Report from Study
  Country: US (occurrence: US)
  Receive Date: 20180821
  Receipt Date: 20181127
  Transmission Date: 20190204
  Serious: No
  Sender: FDA-Public Use
  Company Number: US-ALEXION PHARMACEUTICALS INC.-A201810728

PATIENT
  Sex: Female

DRUGS (2)
  1. STRENSIQ [Suspect]
     Active Substance: ASFOTASE ALFA
     Dosage: UNK
     Route: 058
  2. STRENSIQ [Suspect]
     Active Substance: ASFOTASE ALFA
     Indication: PRODUCT USED FOR UNKNOWN INDICATION
     Dosage: UNK
     Route: 065

REACTIONS (13)
  - Injection site pain [Unknown]
  - Hot flush [Unknown]
  - Oral pruritus [Unknown]
  - Dyspnoea [Unknown]
  - Nausea [Unknown]
  - Tension headache [Unknown]
  - Bone pain [Unknown]
  - Injection site pruritus [Unknown]
  - Cough [Unknown]
  - Nasal discharge discolouration [Unknown]
  - Fatigue [Unknown]
  - Injection site urticaria [Unknown]
  - Hypersensitivity [Unknown]

NARRATIVE: CASE EVENT DATE: 20180818
